FAERS Safety Report 15321457 (Version 1)
Quarter: 2018Q3

REPORT INFORMATION
  Report Type: Spontaneous
  Country: ES (occurrence: ES)
  Receive Date: 20180827
  Receipt Date: 20180827
  Transmission Date: 20181010
  Serious: Yes (Hospitalization)
  Sender: FDA-Public Use
  Company Number: ES-PFIZER INC-2018337216

PATIENT
  Age: 5 Year
  Sex: Female

DRUGS (1)
  1. LORAZEPAM. [Suspect]
     Active Substance: LORAZEPAM
     Dosage: 5 MG, SINGLE
     Route: 048
     Dates: start: 20180715, end: 20180715

REACTIONS (4)
  - Accidental exposure to product [Recovered/Resolved]
  - Somnolence [Recovered/Resolved]
  - Irritability [Recovered/Resolved]
  - Disorientation [Recovered/Resolved]

NARRATIVE: CASE EVENT DATE: 20180715
